FAERS Safety Report 8517178-0 (Version None)
Quarter: 2012Q3

REPORT INFORMATION
  Report Type: 
  Country: None (occurrence: None)
  Receive Date: 20120706
  Receipt Date: 20120627
  Transmission Date: 20120928
  Serious: Yes (Other)
  Sender: FDA-Public Use
  Company Number: AUR-APL-2012-02799

PATIENT
  Age: 65 Year
  Sex: Male
  Weight: 58 kg

DRUGS (1)
  1. FINASTERIDE [Suspect]
     Indication: PRODUCT USED FOR UNKNOWN INDICATION
     Dosage: IN THE EVENING (1 DOSAGE FORMS, 1 IN 1 D), UNKNOWN
     Dates: start: 20120301

REACTIONS (3)
  - IRRITABILITY [None]
  - ASTHENIA [None]
  - TACHYCARDIA [None]
